FAERS Safety Report 4318334-8 (Version None)
Quarter: 2004Q1

REPORT INFORMATION
  Report Type: 
  Country: None (occurrence: None)
  Receive Date: 20040317
  Receipt Date: 20040220
  Transmission Date: 20041129
  Serious: Yes (Hospitalization, Disabling)
  Sender: FDA-Public Use
  Company Number: WAES 0402USA01644

PATIENT
  Age: 61 Year
  Sex: Male
  Weight: 76 kg

DRUGS (4)
  1. LIPITOR [Concomitant]
  2. CANCIDAS [Suspect]
     Indication: SYSTEMIC CANDIDA
     Route: 042
  3. DECADRON [Suspect]
     Route: 048
  4. SULFASALAZINE [Concomitant]

REACTIONS (2)
  - DRUG INEFFECTIVE [None]
  - DRUG INTERACTION [None]
